FAERS Safety Report 5292266-3 (Version None)
Quarter: 2007Q2

REPORT INFORMATION
  Report Type: 
  Country: None (occurrence: None)
  Receive Date: 20070410
  Receipt Date: 20070330
  Transmission Date: 20071010
  Serious: Yes (Death)
  Sender: FDA-Public Use
  Company Number: JP-SANOFI-SYNTHELABO-A01200703698

PATIENT
  Age: 60 Year
  Sex: Male

DRUGS (3)
  1. LEUCOVORIN CALCIUM [Concomitant]
     Route: 042
     Dates: start: 20060612, end: 20060613
  2. OXALIPLATIN [Suspect]
     Route: 042
     Dates: start: 20060612, end: 20060612
  3. FLUOROURACIL [Suspect]
     Route: 042
     Dates: start: 20060612, end: 20060613

REACTIONS (1)
  - INTERSTITIAL LUNG DISEASE [None]
